FAERS Safety Report 4445334-X (Version None)
Quarter: 2004Q3

REPORT INFORMATION
  Report Type: 
  Country: None (occurrence: None)
  Receive Date: 20040903
  Receipt Date: 20040819
  Transmission Date: 20050211
  Serious: Yes (Hospitalization)
  Sender: FDA-Public Use
  Company Number: 04P-062-0271159-00

PATIENT
  Sex: Female

DRUGS (4)
  1. HUMIRA [Suspect]
     Dates: start: 20030301, end: 20040101
  2. HUMIRA [Suspect]
     Dates: start: 20040101, end: 20040201
  3. LEFLUNOMIDE [Suspect]
  4. RITUXIMAB [Suspect]

REACTIONS (2)
  - HIP ARTHROPLASTY [None]
  - LUNG NEOPLASM [None]
